FAERS Safety Report 9268804 (Version 2)
Quarter: 2013Q4

REPORT INFORMATION
  Report Type: Report from Study
  Country: JP (occurrence: JP)
  Receive Date: 20130502
  Receipt Date: 20131001
  Transmission Date: 20140711
  Serious: Yes (Other)
  Sender: FDA-Public Use
  Company Number: JP-009507513-1304JPN013077

PATIENT
  Age: 17 Year
  Sex: Male

DRUGS (1)
  1. BRIDION INTRAVENOUS 200MG [Suspect]
     Route: 042
     Dates: start: 20120919, end: 20120919

REACTIONS (1)
  - Convulsion [Recovering/Resolving]
